FAERS Safety Report 7545121-X (Version None)
Quarter: 2011Q2

REPORT INFORMATION
  Report Type: 
  Country: None (occurrence: None)
  Receive Date: 20110606
  Receipt Date: 20110521
  Transmission Date: 20111010
  Serious: Yes (Hospitalization, Other)
  Sender: FDA-Public Use
  Company Number: IPC201105-001515

PATIENT
  Age: 47 Year
  Sex: Male

DRUGS (11)
  1. PREDNISONE [Suspect]
     Dosage: 10 MG DAILY
  2. SIMVASTATIN [Suspect]
  3. ALBUTEROL [Suspect]
  4. ASPIRIN [Suspect]
  5. AMLODIPINE [Suspect]
  6. CALCITRIOL [Suspect]
  7. HYDROXYCHLOROQUINE SULFATE [Suspect]
     Dosage: 200 MG THRICE DAILY 200 MG TWICE DAILY
  8. MYCOPHENOLATE MEFETIL [Suspect]
     Dosage: 500 MG TWICE DAILY
  9. FLUTICASONE-SALMETEROL METERED-DOSE INHALER (INHALANT) [Suspect]
  10. TEMAZEPAM [Suspect]
  11. CALCIUM CARBONATE [Suspect]

REACTIONS (63)
  - RENAL FAILURE [None]
  - CONDITION AGGRAVATED [None]
  - CHRONIC OBSTRUCTIVE PULMONARY DISEASE [None]
  - ABDOMINAL DISTENSION [None]
  - RALES [None]
  - VENTRICULAR EXTRASYSTOLES [None]
  - RHONCHI [None]
  - PLEURAL EFFUSION [None]
  - DIARRHOEA [None]
  - ASPARTATE AMINOTRANSFERASE INCREASED [None]
  - INTERCAPILLARY GLOMERULOSCLEROSIS [None]
  - PROTEINURIA [None]
  - LIVER DISORDER [None]
  - VENTRICULAR TACHYCARDIA [None]
  - HEPATIC VEIN DILATATION [None]
  - OEDEMA PERIPHERAL [None]
  - DYSPNOEA EXERTIONAL [None]
  - CORONARY ARTERY OCCLUSION [None]
  - TRICUSPID VALVE INCOMPETENCE [None]
  - INFERIOR VENA CAVA DILATATION [None]
  - MYALGIA [None]
  - RENAL ARTERIOSCLEROSIS [None]
  - GASTROOESOPHAGEAL REFLUX DISEASE [None]
  - BEDRIDDEN [None]
  - MITRAL VALVE INCOMPETENCE [None]
  - PALLOR [None]
  - RETCHING [None]
  - DILATATION VENTRICULAR [None]
  - CARDIAC MURMUR [None]
  - RESTRICTIVE CARDIOMYOPATHY [None]
  - CARDIAC FAILURE [None]
  - VOMITING [None]
  - ATRIOVENTRICULAR DISSOCIATION [None]
  - HYPERTENSION [None]
  - ORTHOPNOEA [None]
  - CONDUCTION DISORDER [None]
  - VENTRICULAR HYPERTROPHY [None]
  - NODAL ARRHYTHMIA [None]
  - PYREXIA [None]
  - TORSADE DE POINTES [None]
  - LIPOSARCOMA [None]
  - DYSPNOEA PAROXYSMAL NOCTURNAL [None]
  - CORONARY ARTERY DISEASE [None]
  - OCULAR ICTERUS [None]
  - ASCITES [None]
  - PERICARDIAL EFFUSION [None]
  - BLOOD IMMUNOGLOBULIN G DECREASED [None]
  - CARDIAC ARREST [None]
  - NAUSEA [None]
  - ABDOMINAL PAIN [None]
  - ALANINE AMINOTRANSFERASE INCREASED [None]
  - LUPUS NEPHRITIS [None]
  - SYSTEMIC LUPUS ERYTHEMATOSUS RASH [None]
  - HYPERLIPIDAEMIA [None]
  - PAIN IN EXTREMITY [None]
  - OXYGEN SATURATION DECREASED [None]
  - BREATH SOUNDS ABNORMAL [None]
  - DILATATION ATRIAL [None]
  - CACHEXIA [None]
  - PUPILLARY REFLEX IMPAIRED [None]
  - GASTROINTESTINAL SOUNDS ABNORMAL [None]
  - CARDIOMEGALY [None]
  - INTESTINAL DILATATION [None]
